FAERS Safety Report 4546141-X (Version None)
Quarter: 2005Q1

REPORT INFORMATION
  Report Type: 
  Country: None (occurrence: None)
  Receive Date: 20050106
  Receipt Date: 20041227
  Transmission Date: 20050727
  Serious: Yes (Hospitalization)
  Sender: FDA-Public Use
  Company Number: US-BRISTOL-MYERS SQUIBB COMPANY-12810438

PATIENT
  Age: 88 Year
  Sex: Male

DRUGS (11)
  1. CISPLATIN [Suspect]
     Indication: SQUAMOUS CELL CARCINOMA
     Dosage: INITIATED 17-AUG-2000
     Route: 042
     Dates: start: 20000920, end: 20000920
  2. CETUXIMAB [Suspect]
     Indication: SQUAMOUS CELL CARCINOMA
     Dosage: INITIATED 17-AUG-2000: LOADING DOSE 400 MG/M2
     Route: 042
     Dates: start: 20000920, end: 20000920
  3. SENOKOT [Concomitant]
  4. LEVAQUIN [Concomitant]
  5. DIGOXIN [Concomitant]
  6. ISOSORBIDE [Concomitant]
  7. SYNTHROID [Concomitant]
  8. VANCOMYCIN [Concomitant]
  9. ZOFRAN [Concomitant]
  10. TEMAZEPAM [Concomitant]
  11. CIPROFLOXACIN [Concomitant]

REACTIONS (8)
  - ATRIAL FIBRILLATION [None]
  - BLOOD GLUCOSE INCREASED [None]
  - BLOOD SODIUM DECREASED [None]
  - FISTULA [None]
  - HAEMATOCRIT DECREASED [None]
  - HAEMOGLOBIN DECREASED [None]
  - PLEURAL EFFUSION [None]
  - PNEUMONIA [None]
